FAERS Safety Report 5007344-3 (Version None)
Quarter: 2006Q2

REPORT INFORMATION
  Report Type: 
  Country: None (occurrence: None)
  Receive Date: 20060517
  Receipt Date: 20060503
  Transmission Date: 20061013
  Serious: Yes (Other)
  Sender: FDA-Public Use
  Company Number: HQWYE213408MAY06

PATIENT
  Sex: Female

DRUGS (6)
  1. PREMARIN [Suspect]
  2. ADVIL [Concomitant]
  3. POTASSIUM [Concomitant]
  4. GLUCOSAMINE W/CHONDROITIN SULFATES (ASCORBIC ACID/CHONDROITIN SULFATE/ [Concomitant]
  5. TEMAZEPAM [Concomitant]
  6. CALCIUM GLUCONATE [Concomitant]

REACTIONS (2)
  - THROMBOPHLEBITIS [None]
  - THROMBOSIS [None]
